FAERS Safety Report 7690841-X (Version None)
Quarter: 2011Q3

REPORT INFORMATION
  Report Type: 
  Country: None (occurrence: None)
  Receive Date: 20110812
  Receipt Date: 20110801
  Transmission Date: 20111222
  Serious: Yes (Death)
  Sender: FDA-Public Use
  Company Number: FK201101490

PATIENT
  Age: 43 Year
  Sex: Male

DRUGS (1)
  1. LIDOCAINE [Suspect]
     Indication: PRODUCT USED FOR UNKNOWN INDICATION
     Dosage: INTRAVENOUS
     Route: 042

REACTIONS (3)
  - ARRHYTHMIA [None]
  - VICTIM OF HOMICIDE [None]
  - OVERDOSE [None]
